FAERS Safety Report 9620427 (Version 1)
Quarter: 2013Q4

REPORT INFORMATION
  Report Type: Spontaneous
  Country: US (occurrence: US)
  Receive Date: 20131015
  Receipt Date: 20131015
  Transmission Date: 20140711
  Serious: No
  Sender: FDA-Public Use
  Company Number: -SAAVPROD-BMS18990028

PATIENT
  Age: 59 Year
  Sex: Female

DRUGS (1)
  1. AVALIDE TABS 150MG/12.5MG [Suspect]
     Indication: HYPERTENSION
     Dosage: 1DF =150MG/12.5MG

REACTIONS (1)
  - Blood pressure inadequately controlled [Recovered/Resolved]
